FAERS Safety Report 17826772 (Version 1)
Quarter: 2020Q2

REPORT INFORMATION
  Report Type: Spontaneous
  Country: US (occurrence: US)
  Receive Date: 20200527
  Receipt Date: 20200527
  Transmission Date: 20200714
  Serious: Yes (Death, Other)
  Sender: FDA-Public Use
  Company Number: US-ADVANZ PHARMA-202005005590

PATIENT

DRUGS (15)
  1. CEFEPIME [Concomitant]
     Active Substance: CEFEPIME HYDROCHLORIDE
     Dosage: UNK
  2. IVIG [Concomitant]
     Active Substance: HUMAN IMMUNOGLOBULIN G
     Dosage: 10 G
     Route: 042
  3. SULFAMETHOXAZOLE-TRIMETHOPRIM-DS [Suspect]
     Active Substance: SULFAMETHOXAZOLE\TRIMETHOPRIM
     Indication: PNEUMOCYSTIS JIROVECII PNEUMONIA
     Dosage: UNK
  4. HEPARIN [Suspect]
     Active Substance: HEPARIN SODIUM
  5. LINEZOLID. [Suspect]
     Active Substance: LINEZOLID
     Indication: LEUKOCYTOSIS
     Dosage: UNK
  6. OSELTAMAVIR [Concomitant]
     Active Substance: OSELTAMIVIR
     Dosage: UNK
  7. HYDROXYCHLOROQUINE [HYDROXYCHLOROQUINE SULFATE] [Suspect]
     Active Substance: HYDROXYCHLOROQUINE SULFATE
     Dosage: 400 MG, BID (DAYS 1-4)
  8. TACROLIMUS. [Suspect]
     Active Substance: TACROLIMUS
     Indication: IMMUNOSUPPRESSION
     Dosage: 6 MG, BID
     Route: 065
  9. LOPINAVIR/RITONAVIR [Suspect]
     Active Substance: LOPINAVIR\RITONAVIR
     Indication: ANTIVIRAL TREATMENT
     Dosage: 400 MG, BID ( FOR 5 DAYS)
  10. MICAFUNGIN. [Suspect]
     Active Substance: MICAFUNGIN SODIUM
     Indication: ANTIFUNGAL TREATMENT
     Dosage: 100 MG, QD
  11. TOBRAMYCIN. [Suspect]
     Active Substance: TOBRAMYCIN
     Indication: LEUKOCYTOSIS
     Dosage: UNK
  12. MYCOPHENOLIC ACID. [Suspect]
     Active Substance: MYCOPHENOLIC ACID
     Indication: IMMUNOSUPPRESSION
     Dosage: 360 MG, BID
  13. VANCOMYCIN [Concomitant]
     Active Substance: VANCOMYCIN
  14. TOCILIZUMAB. [Suspect]
     Active Substance: TOCILIZUMAB
     Dosage: 400 MG
     Route: 042
  15. HYDROXYCHLOROQUINE [HYDROXYCHLOROQUINE SULFATE] [Suspect]
     Active Substance: HYDROXYCHLOROQUINE SULFATE
     Indication: COVID-19
     Dosage: 400 MG, BID (DAY 0)

REACTIONS (4)
  - Renal failure [Fatal]
  - Off label use [Unknown]
  - Multiple organ dysfunction syndrome [Fatal]
  - Acute respiratory distress syndrome [Fatal]
